FAERS Safety Report 5744888-0 (Version None)
Quarter: 2008Q2

REPORT INFORMATION
  Report Type: 
  Country: None (occurrence: None)
  Receive Date: 20080516
  Receipt Date: 20080430
  Transmission Date: 20081010
  Serious: Yes (Hospitalization)
  Sender: FDA-Public Use
  Company Number: DSA_31795_2008

PATIENT
  Sex: Female

DRUGS (13)
  1. TEMESTA /00273201/   (TEMESTA - LORAZEPAM) [Suspect]
     Indication: DRUG USE FOR UNKNOWN INDICATION
     Dosage: 1 MG TID ORAL, DF
     Route: 048
     Dates: end: 20080301
  2. TEMESTA /00273201/   (TEMESTA - LORAZEPAM) [Suspect]
     Indication: DRUG USE FOR UNKNOWN INDICATION
     Dosage: 1 MG TID ORAL, DF
     Route: 048
     Dates: start: 20080301, end: 20080327
  3. MIDAZOLAM HCL [Suspect]
     Indication: DRUG USE FOR UNKNOWN INDICATION
     Dosage: 7.5 MG QD ORAL, 7.5 MG PRN ORAL
     Route: 048
     Dates: end: 20080101
  4. MIDAZOLAM HCL [Suspect]
     Indication: DRUG USE FOR UNKNOWN INDICATION
     Dosage: 7.5 MG QD ORAL, 7.5 MG PRN ORAL
     Route: 048
     Dates: start: 20080101
  5. TRANSTEC           (TRANSTEC - BUPRENORPHINE) [Suspect]
     Indication: ARTHRALGIA
     Dosage: 35 MCG/HOUR EVERY 72 HOURS
     Dates: end: 20080101
  6. TOLTERODINE TARTRATE [Concomitant]
  7. OMEPRAZOLE [Concomitant]
  8. MOTILIUM [Concomitant]
  9. CALCIMAGON [Concomitant]
  10. CONDROSULF [Concomitant]
  11. CITALOPRAM HYDROBROMIDE [Concomitant]
  12. MELATONIN [Concomitant]
  13. DAFALGAN [Concomitant]

REACTIONS (7)
  - AMNESTIC DISORDER [None]
  - ASTHENIA [None]
  - CONFUSIONAL STATE [None]
  - DISORIENTATION [None]
  - DISTURBANCE IN ATTENTION [None]
  - INFLAMMATION [None]
  - PYREXIA [None]
